FAERS Safety Report 5148196-0 (Version None)
Quarter: 2006Q4

REPORT INFORMATION
  Report Type: 
  Country: None (occurrence: None)
  Receive Date: 20061110
  Receipt Date: 20060308
  Transmission Date: 20070319
  Serious: Yes (Hospitalization, Other)
  Sender: FDA-Public Use
  Company Number: US-ELI_LILLY_AND_COMPANY-US200606001680

PATIENT
  Age: 38 Year
  Sex: Male
  Weight: 95.238 kg

DRUGS (7)
  1. ZYPREXA [Suspect]
     Indication: DEPRESSION
     Dosage: 10 MG, UNK
     Dates: start: 20030806, end: 20040727
  2. ZYPREXA [Suspect]
     Dosage: 15 MG, UNK
  3. ZYPREXA [Suspect]
     Dosage: 20 MG, UNK
  4. QUETIAPINE [Concomitant]
     Dates: start: 20040701
  5. RISPERIDONE [Concomitant]
     Dates: start: 20050801
  6. PAROXETINE HCL [Concomitant]
     Dates: start: 20031101, end: 20041001
  7. METOPROLOL TARTRATE [Concomitant]
     Dates: start: 20050501

REACTIONS (9)
  - APLASTIC ANAEMIA [None]
  - BLOOD CHOLESTEROL ABNORMAL [None]
  - DIABETES MELLITUS [None]
  - DIABETIC KETOACIDOSIS [None]
  - HYPERGLYCAEMIA [None]
  - HYPERTENSION [None]
  - METABOLIC DISORDER [None]
  - NEUTROPENIA [None]
  - PANCREATITIS [None]
